FAERS Safety Report 9396657 (Version 1)
Quarter: 2013Q3

REPORT INFORMATION
  Report Type: Spontaneous
  Country: US (occurrence: US)
  Receive Date: 20130711
  Receipt Date: 20130711
  Transmission Date: 20140515
  Serious: No
  Sender: FDA-Public Use
  Company Number: US-009507513-1307USA004764

PATIENT
  Sex: Male

DRUGS (2)
  1. PEGINTRON [Suspect]
     Indication: HEPATITIS C
     Dosage: VIAL, DOSE UNKNOWN
  2. REBETOL [Suspect]
     Indication: HEPATITIS C
     Dosage: UNKNOWN
     Route: 048

REACTIONS (1)
  - Fatigue [Unknown]
